FAERS Safety Report 16980979 (Version 1)
Quarter: 2019Q4

REPORT INFORMATION
  Report Type: Spontaneous
  Country: US (occurrence: US)
  Receive Date: 20191031
  Receipt Date: 20191031
  Transmission Date: 20200122
  Serious: No
  Sender: FDA-Public Use
  Company Number: US-UPSHER-SMITH LABORATORIES, LLC-2019USL00047

PATIENT
  Sex: Female
  Weight: 77.1 kg

DRUGS (25)
  1. JANTOVEN [Suspect]
     Active Substance: WARFARIN SODIUM
     Indication: HEART VALVE REPLACEMENT
     Dosage: 1 MG, 1X/DAY
     Route: 048
     Dates: start: 201509, end: 2018
  2. JANTOVEN [Suspect]
     Active Substance: WARFARIN SODIUM
     Dosage: 5 MG, 1X/DAY
     Route: 048
     Dates: start: 2018
  3. TRIAZOLAM. [Concomitant]
     Active Substance: TRIAZOLAM
  4. VITAMIN D3 [Concomitant]
     Active Substance: CHOLECALCIFEROL
  5. CALCIUM [Concomitant]
     Active Substance: CALCIUM
  6. IRON [Concomitant]
     Active Substance: IRON
  7. POTASSIUM [Concomitant]
     Active Substance: POTASSIUM
  8. JANTOVEN [Suspect]
     Active Substance: WARFARIN SODIUM
     Indication: HEART VALVE REPLACEMENT
     Dosage: 5 MG, 1X/DAY
     Route: 048
     Dates: start: 201509, end: 2018
  9. ARIMIDEX [Concomitant]
     Active Substance: ANASTROZOLE
  10. JANTOVEN [Suspect]
     Active Substance: WARFARIN SODIUM
     Indication: HEART VALVE OPERATION
     Dosage: 10 MG, 1X/DAY
     Route: 048
     Dates: start: 2018, end: 2018
  11. AZITHROMYCIN ANHYDROUS. [Concomitant]
     Active Substance: AZITHROMYCIN ANHYDROUS
  12. SYNTHROID [Concomitant]
     Active Substance: LEVOTHYROXINE SODIUM
  13. MULTI VITAMIN [Concomitant]
     Active Substance: VITAMINS
  14. JANTOVEN [Suspect]
     Active Substance: WARFARIN SODIUM
     Indication: HEART VALVE OPERATION
     Dosage: 1 MG, 1X/DAY
     Route: 048
     Dates: start: 2018
  15. ALENDRONATE [Concomitant]
     Active Substance: ALENDRONATE SODIUM
  16. FUROSEMIDE. [Concomitant]
     Active Substance: FUROSEMIDE
  17. PANTOPRAZOLE [Concomitant]
     Active Substance: PANTOPRAZOLE
  18. SPIRONOLACTONE. [Concomitant]
     Active Substance: SPIRONOLACTONE
  19. BYSTOLIC [Concomitant]
     Active Substance: NEBIVOLOL HYDROCHLORIDE
  20. ANASTROZOLE. [Concomitant]
     Active Substance: ANASTROZOLE
  21. AMLODIPINE [Concomitant]
     Active Substance: AMLODIPINE BESYLATE
  22. ATORVASTATIN [Concomitant]
     Active Substance: ATORVASTATIN
  23. CELEBREX [Concomitant]
     Active Substance: CELECOXIB
     Dosage: UNK, AS NEEDED
  24. BIOTIN [Concomitant]
     Active Substance: BIOTIN
  25. OCUVITE [Concomitant]
     Active Substance: VITAMINS

REACTIONS (2)
  - International normalised ratio increased [Recovered/Resolved]
  - Product appearance confusion [Recovered/Resolved]

NARRATIVE: CASE EVENT DATE: 2018
